FAERS Safety Report 8970034 (Version 3)
Quarter: 2013Q1

REPORT INFORMATION
  Report Type: Spontaneous
  Country: US (occurrence: US)
  Receive Date: 20121217
  Receipt Date: 20130110
  Transmission Date: 20140127
  Serious: Yes (Other)
  Sender: FDA-Public Use
  Company Number: US-PFIZER INC-2012311888

PATIENT
  Age: 36 Year
  Sex: Female
  Weight: 77.1 kg

DRUGS (9)
  1. ROBITUSSIN DM [Suspect]
     Indication: MALAISE
     Dosage: UNK
     Dates: start: 200811
  2. ROBITUSSIN DM [Interacting]
     Indication: BRONCHITIS
     Dosage: UNK
     Dates: start: 201011
  3. ROBITUSSIN DM [Interacting]
     Dosage: UNK (4 GULPS EVERY HOUR/6 BOTTLES OF 8OZ IN A DAY)
  4. PROZAC [Concomitant]
     Indication: BIPOLAR DISORDER
     Dosage: UNK
  5. PROZAC [Concomitant]
     Indication: BORDERLINE PERSONALITY DISORDER
  6. WELLBUTRIN [Concomitant]
     Indication: BIPOLAR DISORDER
     Dosage: UNK
  7. WELLBUTRIN [Concomitant]
     Indication: BORDERLINE PERSONALITY DISORDER
  8. RISPERDAL [Concomitant]
     Indication: BIPOLAR DISORDER
     Dosage: UNK
  9. RISPERDAL [Concomitant]
     Indication: BORDERLINE PERSONALITY DISORDER

REACTIONS (21)
  - Brain injury [Not Recovered/Not Resolved]
  - Drug dependence [Not Recovered/Not Resolved]
  - Overdose [Unknown]
  - Cartilage injury [Not Recovered/Not Resolved]
  - Mental disorder [Not Recovered/Not Resolved]
  - Coma [Unknown]
  - Abasia [Unknown]
  - Dissociative identity disorder [Not Recovered/Not Resolved]
  - Nervous system disorder [Not Recovered/Not Resolved]
  - Withdrawal syndrome [Unknown]
  - Neuropathy peripheral [Not Recovered/Not Resolved]
  - Discomfort [Not Recovered/Not Resolved]
  - Nausea [Not Recovered/Not Resolved]
  - Emotional disorder [Not Recovered/Not Resolved]
  - Personality disorder [Not Recovered/Not Resolved]
  - Weight decreased [Unknown]
  - Body height decreased [Unknown]
  - Drug interaction [Unknown]
  - Malaise [Unknown]
  - Feeling abnormal [Unknown]
  - Drug abuse [Unknown]
